FAERS Safety Report 6885421-X (Version None)
Quarter: 2010Q3

REPORT INFORMATION
  Report Type: 
  Country: None (occurrence: None)
  Receive Date: 20100729
  Receipt Date: 20090325
  Transmission Date: 20110219
  Serious: No
  Sender: FDA-Public Use
  Company Number: US-PFIZER INC-2009180096

PATIENT
  Sex: Female

DRUGS (1)
  1. CELEBREX [Suspect]
     Indication: TENOSYNOVITIS
     Dosage: 200 MG, 2X/DAY
     Dates: start: 20090301

REACTIONS (3)
  - AGITATION [None]
  - ANXIETY [None]
  - STRESS [None]
